FAERS Safety Report 5356996-7 (Version None)
Quarter: 2007Q2

REPORT INFORMATION
  Report Type: 
  Country: None (occurrence: None)
  Receive Date: 20070612
  Receipt Date: 20070612
  Transmission Date: 20071010
  Serious: Yes (Life-Threatening, Hospitalization)
  Sender: FDA-Public Use
  Company Number: None

PATIENT
  Age: 45 Year
  Sex: Female

DRUGS (1)
  1. HOODIA- ? /? [Suspect]
     Dosage: ONCE DAY ORAL
     Route: 048

REACTIONS (3)
  - FATIGUE [None]
  - JAUNDICE [None]
  - MALAISE [None]
